FAERS Safety Report 16284512 (Version 1)
Quarter: 2019Q2

REPORT INFORMATION
  Report Type: Spontaneous
  Country: US (occurrence: US)
  Receive Date: 20190508
  Receipt Date: 20190508
  Transmission Date: 20190711
  Serious: No
  Sender: FDA-Public Use
  Company Number: US-BIOGEN-2019BI00712803

PATIENT
  Sex: Female
  Weight: 90.8 kg

DRUGS (3)
  1. TRAMADOL. [Concomitant]
     Active Substance: TRAMADOL
     Route: 065
  2. TYSABRI [Suspect]
     Active Substance: NATALIZUMAB
     Indication: MULTIPLE SCLEROSIS
     Dosage: INFUSED OVER ONE HOUR
     Route: 042
     Dates: start: 20090408
  3. IBU [Concomitant]
     Active Substance: IBUPROFEN
     Dosage: TAKE ONE TABLET THREE TIMES A DAY BY ORAL ROUTE AS NEEDED
     Route: 048

REACTIONS (1)
  - Multiple sclerosis [Unknown]
